FAERS Safety Report 12370644 (Version 2)
Quarter: 2017Q1

REPORT INFORMATION
  Report Type: Report from Study
  Country: NL (occurrence: NL)
  Receive Date: 20160516
  Receipt Date: 20170302
  Transmission Date: 20170428
  Serious: Yes (Hospitalization, Other)
  Sender: FDA-Public Use
  Company Number: NL-ELI_LILLY_AND_COMPANY-NL201604001508

PATIENT
  Age: 75 Year
  Sex: Female
  Weight: 75 kg

DRUGS (17)
  1. FORSTEO [Suspect]
     Active Substance: TERIPARATIDE
     Indication: OSTEOPOROSIS
     Dosage: 20 UG, QD
     Route: 058
     Dates: start: 20160321
  2. VALSARTAN. [Concomitant]
     Active Substance: VALSARTAN
  3. FORSTEO [Suspect]
     Active Substance: TERIPARATIDE
     Dosage: 20 UG, QD
     Route: 058
  4. NIFEDIPINE. [Concomitant]
     Active Substance: NIFEDIPINE
  5. FENPROCOUMON [Concomitant]
     Active Substance: PHENPROCOUMON
  6. FORSTEO [Suspect]
     Active Substance: TERIPARATIDE
     Dosage: 20 UG, QD
     Route: 058
  7. LACTULOSE. [Concomitant]
     Active Substance: LACTULOSE
  8. MICONAZOL [Concomitant]
     Active Substance: MICONAZOLE NITRATE
     Dosage: UNK, UNKNOWN
     Route: 065
  9. VASELINE                           /00473501/ [Concomitant]
     Dosage: UNK UNK, QD
     Route: 065
  10. PARACETAMOL [Concomitant]
     Active Substance: ACETAMINOPHEN
  11. PRAVASTATIN. [Concomitant]
     Active Substance: PRAVASTATIN
  12. CALCIUMCARBONAT [Concomitant]
     Dosage: 1 DF, QD
     Route: 048
  13. METOPROLOL. [Concomitant]
     Active Substance: METOPROLOL
     Dosage: 1 DF, QD
     Route: 048
  14. FUROSEMIDE. [Concomitant]
     Active Substance: FUROSEMIDE
     Dosage: 1 DF, QD
     Route: 048
  15. OXYCODON [Concomitant]
     Active Substance: OXYCODONE
  16. PANTOPRAZOL [Concomitant]
     Active Substance: PANTOPRAZOLE SODIUM
  17. FLUTICASONPROPIONAAT [Concomitant]
     Dosage: 1 DF, QD
     Route: 045

REACTIONS (15)
  - Fatigue [Not Recovered/Not Resolved]
  - Hernia [Unknown]
  - Blood pressure fluctuation [Unknown]
  - Chest pain [Unknown]
  - Pruritus [Not Recovered/Not Resolved]
  - Cervical vertebral fracture [Unknown]
  - Blood pressure increased [Not Recovered/Not Resolved]
  - Arthralgia [Not Recovered/Not Resolved]
  - Pain in extremity [Not Recovered/Not Resolved]
  - Heart rate irregular [Not Recovered/Not Resolved]
  - Pain [Not Recovered/Not Resolved]
  - Hypoaesthesia [Unknown]
  - Cystitis noninfective [Recovered/Resolved]
  - Back pain [Not Recovered/Not Resolved]
  - Abdominal distension [Not Recovered/Not Resolved]

NARRATIVE: CASE EVENT DATE: 201601
